FAERS Safety Report 9115147 (Version 1)
Quarter: 2013Q1

REPORT INFORMATION
  Report Type: Spontaneous
  Country: NG (occurrence: None)
  Receive Date: 20130125
  Receipt Date: 20130125
  Transmission Date: 20140127
  Serious: Yes (Hospitalization)
  Sender: FDA-Public Use
  Company Number: FK201300136

PATIENT
  Age: 41 Year
  Sex: Female

DRUGS (3)
  1. CHORIONIC GONADOTROPIN [Suspect]
     Indication: PRODUCT USED FOR UNKNOWN INDICATION
     Dosage: 10000  IU,  1  IN  1  ONCE,  UNKNOWN?10/25/2010  -  10/25/2010
     Dates: start: 20101025, end: 20101025
  2. CLOMIPHENE CITRATE (CLOMIFENE CITRATE) [Concomitant]
  3. PROGESTERONE CAPROATE [Concomitant]

REACTIONS (2)
  - Heterotopic pregnancy [None]
  - Exposure during pregnancy [None]
